FAERS Safety Report 11319654 (Version 1)
Quarter: 2015Q3

REPORT INFORMATION
  Report Type: Report from Study
  Country: US (occurrence: US)
  Receive Date: 20150729
  Receipt Date: 20150729
  Transmission Date: 20151125
  Serious: Yes (Hospitalization)
  Sender: FDA-Public Use
  Company Number: US-ABBVIE-15K-163-1428008-00

PATIENT
  Age: 54 Year
  Sex: Female
  Weight: 43.13 kg

DRUGS (1)
  1. HUMIRA [Suspect]
     Active Substance: ADALIMUMAB
     Indication: COLITIS ULCERATIVE
     Route: 058
     Dates: start: 201406, end: 20150403

REACTIONS (10)
  - Haemoglobin decreased [Unknown]
  - Serum ferritin increased [Unknown]
  - Haematocrit decreased [Unknown]
  - Malnutrition [Recovered/Resolved]
  - Colitis [Recovered/Resolved]
  - Colitis ulcerative [Recovered/Resolved]
  - Drug ineffective [Not Recovered/Not Resolved]
  - Clostridium difficile infection [Recovered/Resolved]
  - Red blood cell count decreased [Unknown]
  - Drug dependence [Unknown]

NARRATIVE: CASE EVENT DATE: 2015
